FAERS Safety Report 7251583-8 (Version None)
Quarter: 2011Q1

REPORT INFORMATION
  Report Type: 
  Country: None (occurrence: None)
  Receive Date: 20110128
  Receipt Date: 20110117
  Transmission Date: 20110831
  Serious: Yes (Hospitalization, Other)
  Sender: FDA-Public Use
  Company Number: ES-ELI_LILLY_AND_COMPANY-ES201011000952

PATIENT
  Sex: Female
  Weight: 65 kg

DRUGS (6)
  1. AUGMENTIN XR [Concomitant]
     Indication: PNEUMONIA
     Dosage: 2 D/F, 2/D
     Route: 048
  2. MASTICAL [Concomitant]
     Indication: BLOOD CALCIUM
     Dosage: 1 D/F, 2/D
     Route: 048
  3. HIDROFEROL [Concomitant]
     Indication: VITAMIN D DEFICIENCY
     Dosage: 1 D/F, WEEKLY (1/W)
     Route: 048
  4. FORTEO [Suspect]
     Indication: OSTEOPOROSIS
     Dosage: 20 UG, DAILY (1/D)
     Route: 058
     Dates: start: 20101004, end: 20101102
  5. DONEPEZIL HCL [Concomitant]
     Dates: start: 20100705
  6. CRESTOR [Concomitant]
     Indication: HYPERCHOLESTEROLAEMIA
     Dosage: 1 D/F, DAILY (1/D)
     Route: 048

REACTIONS (5)
  - TRANSIENT ISCHAEMIC ATTACK [None]
  - MONOPARESIS [None]
  - SEPSIS [None]
  - RENAL FAILURE [None]
  - PNEUMONIA [None]
